FAERS Safety Report 6445591-4 (Version None)
Quarter: 2009Q4

REPORT INFORMATION
  Report Type: 
  Country: None (occurrence: None)
  Receive Date: 20091118
  Receipt Date: 20091109
  Transmission Date: 20100525
  Serious: Yes (Other)
  Sender: FDA-Public Use
  Company Number: US-ABBOTT-09P-163-0607858-00

PATIENT
  Age: 43 Year
  Sex: Male
  Weight: 95.34 kg

DRUGS (3)
  1. SIMCOR [Suspect]
     Indication: BLOOD CHOLESTEROL INCREASED
     Dosage: 500MG/20MG
     Route: 048
     Dates: start: 20091025, end: 20091027
  2. CETIRIZINE [Concomitant]
     Indication: HYPERSENSITIVITY
     Dosage: UNKNOWN
  3. ASPIRIN [Concomitant]
     Indication: PROPHYLAXIS
     Dates: start: 20091026, end: 20091027

REACTIONS (4)
  - FEELING ABNORMAL [None]
  - FLUSHING [None]
  - LOSS OF CONSCIOUSNESS [None]
  - SKIN BURNING SENSATION [None]
